FAERS Safety Report 14436350 (Version 1)
Quarter: 2018Q1

REPORT INFORMATION
  Report Type: Spontaneous
  Country: US (occurrence: US)
  Receive Date: 20180125
  Receipt Date: 20180125
  Transmission Date: 20180509
  Serious: No
  Sender: FDA-Public Use
  Company Number: US-UNITED THERAPEUTICS-UNT-2017-010828

PATIENT
  Age: 66 Year
  Sex: Male
  Weight: 159.64 kg

DRUGS (3)
  1. TYVASO [Suspect]
     Active Substance: TREPROSTINIL
     Indication: PULMONARY ARTERIAL HYPERTENSION
     Dosage: 18-54 MICROGRAMS, QID
     Dates: start: 20170712, end: 201707
  2. COUMADIN [Concomitant]
     Active Substance: WARFARIN SODIUM
     Indication: PRODUCT USED FOR UNKNOWN INDICATION
     Route: 065
  3. REVATIO [Concomitant]
     Active Substance: SILDENAFIL CITRATE
     Indication: PRODUCT USED FOR UNKNOWN INDICATION
     Route: 065

REACTIONS (6)
  - Diarrhoea [Recovered/Resolved]
  - Headache [Recovered/Resolved]
  - Nausea [Recovered/Resolved]
  - Cough [Recovered/Resolved]
  - Chest discomfort [Recovered/Resolved]
  - Dyspnoea [Not Recovered/Not Resolved]

NARRATIVE: CASE EVENT DATE: 201707
